FAERS Safety Report 7321122-1 (Version None)
Quarter: 2011Q1

REPORT INFORMATION
  Report Type: 
  Country: None (occurrence: None)
  Receive Date: 20110228
  Receipt Date: 20110218
  Transmission Date: 20110831
  Serious: No
  Sender: FDA-Public Use
  Company Number: BR-ASTRAZENECA-2011SE09719

PATIENT
  Age: 83 Year
  Sex: Male
  Weight: 78 kg

DRUGS (7)
  1. ATACAND [Suspect]
     Indication: HYPERTENSION
     Route: 048
     Dates: start: 20090101
  2. SEROQUEL [Suspect]
     Dosage: INCREASED
     Route: 048
  3. CITALOPRAM [Concomitant]
     Indication: DEMENTIA ALZHEIMER'S TYPE
     Route: 048
     Dates: start: 20050101
  4. SEROQUEL [Suspect]
     Route: 048
  5. PURAN T4 [Concomitant]
     Indication: HYPOTHYROIDISM
     Route: 048
     Dates: start: 20050101
  6. GLUCOFORMIN [Concomitant]
     Indication: DIABETES MELLITUS
     Route: 048
     Dates: start: 20050101
  7. SEROQUEL [Suspect]
     Indication: DEMENTIA ALZHEIMER'S TYPE
     Route: 048
     Dates: start: 20050101

REACTIONS (6)
  - BLOOD CHOLESTEROL INCREASED [None]
  - ANAEMIA [None]
  - DELIRIUM [None]
  - HYPERTENSION [None]
  - OFF LABEL USE [None]
  - RESTLESSNESS [None]
